FAERS Safety Report 11653620 (Version 1)
Quarter: 2015Q4

REPORT INFORMATION
  Report Type: Spontaneous
  Country: US (occurrence: US)
  Receive Date: 20151022
  Receipt Date: 20151022
  Transmission Date: 20160304
  Serious: No
  Sender: FDA-Public Use
  Company Number: US-TARO-2015TAR00674

PATIENT
  Sex: Female

DRUGS (1)
  1. CARBAMAZEPINE ORAL SUSPENSION USP 100MG/5ML [Suspect]
     Active Substance: CARBAMAZEPINE

REACTIONS (1)
  - Blood glucose increased [Unknown]
